FAERS Safety Report 7769400-6 (Version None)
Quarter: 2011Q3

REPORT INFORMATION
  Report Type: 
  Country: None (occurrence: None)
  Receive Date: 20110922
  Receipt Date: 20110321
  Transmission Date: 20111222
  Serious: No
  Sender: FDA-Public Use
  Company Number: US-ASTRAZENECA-2011SE15804

PATIENT
  Sex: Female
  Weight: 68 kg

DRUGS (11)
  1. DEPAKOTE [Concomitant]
  2. PROZAC [Concomitant]
  3. VISTARIL [Concomitant]
     Indication: PRURITUS
  4. SEROQUEL [Suspect]
     Indication: BIPOLAR DISORDER
     Route: 048
     Dates: start: 20110101, end: 20110318
  5. ALBUTEROL [Concomitant]
     Indication: CHRONIC OBSTRUCTIVE PULMONARY DISEASE
     Dosage: AS REQUIRED
     Route: 055
  6. LORAZEPAM [Concomitant]
  7. COUMADIN [Concomitant]
     Indication: CARDIAC DISORDER
  8. SYMBICORT [Concomitant]
     Indication: CHRONIC OBSTRUCTIVE PULMONARY DISEASE
     Route: 055
  9. SOMA [Concomitant]
  10. SOTALOL HCL [Concomitant]
     Indication: HYPERTENSION
  11. HYDROCODONE [Concomitant]

REACTIONS (5)
  - DRUG DOSE OMISSION [None]
  - WEIGHT INCREASED [None]
  - EAR INFECTION [None]
  - MALAISE [None]
  - THERAPEUTIC RESPONSE UNEXPECTED [None]
